FAERS Safety Report 9728483 (Version 2)
Quarter: 2013Q4

REPORT INFORMATION
  Report Type: Spontaneous
  Country: SA (occurrence: SA)
  Receive Date: 20131204
  Receipt Date: 20131212
  Transmission Date: 20140711
  Serious: No
  Sender: FDA-Public Use
  Company Number: SA-VERTEX PHARMACEUTICALS INC-2013-011533

PATIENT
  Age: 69 Year
  Sex: Male
  Weight: 70 kg

DRUGS (3)
  1. INCIVO [Suspect]
     Indication: HEPATITIS C
     Dosage: 750 MG, UNK
     Route: 048
     Dates: start: 20130826, end: 201311
  2. RIBAVIRIN [Suspect]
     Indication: HEPATITIS C
     Dosage: DOSAGE FORM: UNSPECIFIED, 400 MG IN AM AND 600 MG IN PM
     Route: 065
     Dates: start: 20130826
  3. PEG-INTERFERON [Suspect]
     Indication: HEPATITIS C
     Dosage: DOSAGE FORM: UNSPECIFIED
     Route: 065
     Dates: start: 20130426

REACTIONS (1)
  - Rash [Recovered/Resolved]
